FAERS Safety Report 4865373-4 (Version None)
Quarter: 2005Q4

REPORT INFORMATION
  Report Type: 
  Country: None (occurrence: None)
  Receive Date: 20051223
  Receipt Date: 20051209
  Transmission Date: 20060501
  Serious: Yes (Hospitalization, Other)
  Sender: FDA-Public Use
  Company Number: DE-AMGEN-UK160976

PATIENT
  Sex: Female
  Weight: 63 kg

DRUGS (3)
  1. KEPIVANCE [Suspect]
     Indication: MUCOSAL INFLAMMATION
     Route: 042
     Dates: start: 20051008, end: 20051021
  2. CYCLOSPORINE [Concomitant]
     Route: 065
  3. TACROLIMUS [Concomitant]
     Route: 065

REACTIONS (6)
  - BLOOD LACTATE DEHYDROGENASE INCREASED [None]
  - DIALYSIS [None]
  - DYSGEUSIA [None]
  - RENAL FAILURE [None]
  - SWOLLEN TONGUE [None]
  - THROMBOTIC MICROANGIOPATHY [None]
